FAERS Safety Report 15746344 (Version 2)
Quarter: 2019Q3

REPORT INFORMATION
  Report Type: Spontaneous
  Country: US (occurrence: US)
  Receive Date: 20181220
  Receipt Date: 20190729
  Transmission Date: 20191004
  Serious: Yes (Other)
  Sender: FDA-Public Use
  Company Number: US-SA-2018SA342284

PATIENT
  Age: 43 Year
  Sex: Female
  Weight: 134 kg

DRUGS (9)
  1. DOCETAXEL. [Suspect]
     Active Substance: DOCETAXEL
     Indication: BREAST CANCER
     Dosage: 75 MG/M2, Q3W
     Route: 042
     Dates: start: 20140828, end: 20140828
  2. HERCEPTIN [Concomitant]
     Active Substance: TRASTUZUMAB
  3. CARBOPLATIN. [Concomitant]
     Active Substance: CARBOPLATIN
  4. NAVELBINE [Concomitant]
     Active Substance: VINORELBINE TARTRATE
  5. DOCETAXEL. [Suspect]
     Active Substance: DOCETAXEL
     Dosage: 75 MG/M2, QW
     Route: 042
     Dates: start: 20140611, end: 20140611
  6. METFORMIN [Concomitant]
     Active Substance: METFORMIN HYDROCHLORIDE
     Dosage: UNK, UNK
  7. LETROZOLE. [Concomitant]
     Active Substance: LETROZOLE
  8. VITAMIN D2 [Concomitant]
     Active Substance: ERGOCALCIFEROL
     Dosage: UNK, UNK
  9. PARAPLATIN [Concomitant]
     Active Substance: CARBOPLATIN

REACTIONS (2)
  - Alopecia [Not Recovered/Not Resolved]
  - Psychological trauma [Unknown]

NARRATIVE: CASE EVENT DATE: 20150506
